FAERS Safety Report 12959408 (Version 1)
Quarter: 2016Q4

REPORT INFORMATION
  Report Type: Report from Study
  Country: MX (occurrence: MX)
  Receive Date: 20161121
  Receipt Date: 20161121
  Transmission Date: 20170207
  Serious: Yes (Hospitalization)
  Sender: FDA-Public Use
  Company Number: PHHY2016MX158779

PATIENT
  Sex: Male

DRUGS (1)
  1. ULTIBRO BREEZHALER [Suspect]
     Active Substance: GLYCOPYRRONIUM\INDACATEROL
     Indication: LUNG DISORDER
     Dosage: 50 UG, QD STARTED 5 DAYS AGO
     Route: 065

REACTIONS (3)
  - Cough [Unknown]
  - Product use issue [Not Recovered/Not Resolved]
  - Lymphoma [Unknown]
